FAERS Safety Report 9052833 (Version 1)
Quarter: 2013Q1

REPORT INFORMATION
  Report Type: Spontaneous
  Country: GB (occurrence: GB)
  Receive Date: 20130207
  Receipt Date: 20130207
  Transmission Date: 20140127
  Serious: Yes (Death, Hospitalization, Other)
  Sender: FDA-Public Use
  Company Number: GB-RANBAXY-2013R1-64923

PATIENT
  Age: 58 Year
  Sex: Male
  Weight: 70 kg

DRUGS (19)
  1. ABACAVIR [Suspect]
     Indication: HIV INFECTION
     Dosage: 600 MG, QD
     Route: 048
     Dates: start: 20120816, end: 20120917
  2. CLARITHROMYCIN [Interacting]
     Indication: PRODUCT USED FOR UNKNOWN INDICATION
     Dosage: UNK
     Route: 065
     Dates: start: 20121011
  3. DAPSONE [Interacting]
     Indication: PRODUCT USED FOR UNKNOWN INDICATION
     Dosage: UNK
     Route: 065
     Dates: start: 20120830, end: 20120910
  4. DARUNAVIR [Interacting]
     Indication: HIV INFECTION
     Dosage: 800 MG, QD
     Route: 065
     Dates: start: 20120816, end: 20120917
  5. KALETRA [Interacting]
     Indication: HIV INFECTION
     Dosage: 100 MG, QD
     Route: 048
     Dates: start: 20121019
  6. KIVEXA [Interacting]
     Indication: HIV INFECTION
     Dosage: UNK
     Route: 065
     Dates: start: 20121109
  7. NORVIR [Interacting]
     Indication: HIV INFECTION
     Dosage: 100 MG, QD
     Route: 065
     Dates: start: 20120816, end: 20120917
  8. RALTEGRAVIR [Interacting]
     Indication: HIV INFECTION
     Dosage: 400 MG, BID
     Route: 065
     Dates: start: 20120816, end: 20120917
  9. SEPTRIN [Interacting]
     Indication: PRODUCT USED FOR UNKNOWN INDICATION
     Dosage: 960 MG, QD
     Route: 065
     Dates: start: 20120803, end: 20120830
  10. ACICLOVIR [Concomitant]
     Indication: PRODUCT USED FOR UNKNOWN INDICATION
     Dosage: 400 MG, BID
     Route: 065
     Dates: start: 20121011
  11. ATORVASTATIN [Concomitant]
     Indication: PRODUCT USED FOR UNKNOWN INDICATION
     Dosage: 10 MG, DAILY
     Route: 065
     Dates: start: 20120925
  12. AZITHROMYCIN [Concomitant]
     Indication: PRODUCT USED FOR UNKNOWN INDICATION
     Dosage: 1250 MG, 1/WEEK
     Route: 065
  13. BISOPROLOL [Concomitant]
     Indication: PRODUCT USED FOR UNKNOWN INDICATION
     Dosage: 5 MG, QD
     Route: 065
  14. CHLORPHENIRAMINE MALEATE [Concomitant]
     Indication: PRODUCT USED FOR UNKNOWN INDICATION
     Dosage: 4 MG, PRN
     Route: 065
  15. FLUCONAZOLE [Concomitant]
     Indication: PRODUCT USED FOR UNKNOWN INDICATION
     Dosage: 50MG, DAILY
     Route: 065
     Dates: start: 20121011
  16. NIFEDIPINE [Concomitant]
     Indication: PRODUCT USED FOR UNKNOWN INDICATION
     Dosage: 10MG, DAILY
     Route: 065
     Dates: start: 20120628
  17. PIRITON [Concomitant]
     Indication: PRODUCT USED FOR UNKNOWN INDICATION
     Dosage: 4 MG, PRN
     Route: 065
  18. PREDNISOLONE [Concomitant]
     Indication: PRODUCT USED FOR UNKNOWN INDICATION
     Dosage: UNK
     Route: 065
  19. RANITIDINE [Concomitant]
     Indication: PRODUCT USED FOR UNKNOWN INDICATION
     Dosage: 300MG, DAILY
     Route: 065

REACTIONS (21)
  - Abdominal pain [Unknown]
  - Coronary artery disease [Unknown]
  - C-reactive protein increased [Unknown]
  - Drug reaction with eosinophilia and systemic symptoms [Fatal]
  - Drug interaction [Unknown]
  - Oedema [Unknown]
  - Renal impairment [Unknown]
  - Liver disorder [Unknown]
  - HIV associated nephropathy [Unknown]
  - Hypotension [Unknown]
  - Induration [Unknown]
  - Pruritus generalised [Unknown]
  - Metabolic acidosis [Unknown]
  - Nausea [Unknown]
  - Tachycardia [Unknown]
  - Thrombocytopenia [Unknown]
  - Toxic epidermal necrolysis [Fatal]
  - Malaise [Unknown]
  - Diarrhoea [Unknown]
  - Asthenia [Unknown]
  - White blood cell count increased [Unknown]
